FAERS Safety Report 8636215 (Version 4)
Quarter: 2017Q2

REPORT INFORMATION
  Report Type: Report from Study
  Country: KR (occurrence: KR)
  Receive Date: 20120626
  Receipt Date: 20170410
  Transmission Date: 20170830
  Serious: Yes (Other)
  Sender: FDA-Public Use
  Company Number: KR-ROCHE-652507

PATIENT

DRUGS (4)
  1. PREDNISOLONE. [Suspect]
     Active Substance: PREDNISOLONE
     Indication: B-CELL LYMPHOMA
     Dosage: GIVEN ON DAYS 1 TO 5 OF EVERY CYCLE (REPEATED EVERY 3 WEEKS)
     Route: 048
  2. VINCRISTINE [Suspect]
     Active Substance: VINCRISTINE
     Indication: B-CELL LYMPHOMA
     Dosage: GIVEN ON DAY 1 OF EVERY CYCLE; DOSE: 1.4 MG/M2 ( MAXIMUM 2.0 MG)
     Route: 042
  3. RITUXIMAB [Suspect]
     Active Substance: RITUXIMAB
     Indication: B-CELL LYMPHOMA
     Dosage: ON DAY 1 OF EVERY CYCLE
     Route: 042
  4. CYCLOPHOSPHAMIDE. [Suspect]
     Active Substance: CYCLOPHOSPHAMIDE
     Indication: B-CELL LYMPHOMA
     Dosage: GIVEN ON DAY 1 OF EACH CYCLE
     Route: 042

REACTIONS (14)
  - Rash [Unknown]
  - Febrile neutropenia [Unknown]
  - Asthenia [Unknown]
  - Hyperbilirubinaemia [Unknown]
  - Pyrexia [Unknown]
  - Neutropenia [Unknown]
  - Anaemia [Unknown]
  - Peripheral sensory neuropathy [Unknown]
  - Aspartate aminotransferase increased [Unknown]
  - Abdominal pain [Unknown]
  - Alanine aminotransferase increased [Unknown]
  - Thrombocytopenia [Unknown]
  - Diarrhoea [Unknown]
  - Alopecia [Unknown]
